FAERS Safety Report 14693318 (Version 2)
Quarter: 2018Q2

REPORT INFORMATION
  Report Type: Spontaneous
  Country: US (occurrence: US)
  Receive Date: 20180329
  Receipt Date: 20180403
  Transmission Date: 20180711
  Serious: Yes (Other)
  Sender: FDA-Public Use
  Company Number: US-GUERBET-US-20180078

PATIENT
  Age: 47 Year
  Sex: Female

DRUGS (5)
  1. 1% LIDOCAINE [Concomitant]
     Indication: LOCAL ANAESTHESIA
     Route: 065
  2. NITROGLYCERIN. [Concomitant]
     Active Substance: NITROGLYCERIN
     Indication: VASODILATION PROCEDURE
     Route: 013
  3. VERAPAMIL [Concomitant]
     Active Substance: VERAPAMIL HYDROCHLORIDE
     Indication: VASODILATION PROCEDURE
     Route: 013
  4. SODIUM CHLORIDE 0.9% INJECTION [Suspect]
     Active Substance: SODIUM CHLORIDE
     Indication: PRODUCT USED FOR UNKNOWN INDICATION
     Route: 013
  5. HEPARIN [Concomitant]
     Active Substance: HEPARIN SODIUM
     Indication: VASODILATION PROCEDURE
     Dosage: 4000 UNITS
     Route: 013

REACTIONS (2)
  - Pallor [Recovered/Resolved]
  - Skin necrosis [Recovered/Resolved]
